FAERS Safety Report 13227037 (Version 1)
Quarter: 2017Q1

REPORT INFORMATION
  Report Type: Spontaneous
  Country: GB (occurrence: GB)
  Receive Date: 20170213
  Receipt Date: 20170213
  Transmission Date: 20170428
  Serious: Yes (Other)
  Sender: FDA-Public Use
  Company Number: GB-AKORN PHARMACEUTICALS-2017AKN00145

PATIENT
  Age: 80 Year
  Sex: Female

DRUGS (11)
  1. TRANEXAMIC ACID. [Suspect]
     Active Substance: TRANEXAMIC ACID
     Indication: KNEE ARTHROPLASTY
     Route: 065
  2. RAMIPRIL. [Concomitant]
     Active Substance: RAMIPRIL
  3. VITAMIN B12 [Concomitant]
     Active Substance: CYANOCOBALAMIN
     Indication: PERNICIOUS ANAEMIA
  4. ONDANSETRON [Concomitant]
     Active Substance: ONDANSETRON
     Indication: KNEE ARTHROPLASTY
  5. FENTANYL. [Concomitant]
     Active Substance: FENTANYL
     Indication: KNEE ARTHROPLASTY
  6. ALENODRONIC ACID [Concomitant]
  7. PROPOFOL. [Concomitant]
     Active Substance: PROPOFOL
     Indication: KNEE ARTHROPLASTY
  8. KETAMINE [Concomitant]
     Active Substance: KETAMINE
     Indication: KNEE ARTHROPLASTY
  9. MIDAZOLAM [Concomitant]
     Active Substance: MIDAZOLAM HYDROCHLORIDE
     Indication: KNEE ARTHROPLASTY
  10. METFORMIN [Concomitant]
     Active Substance: METFORMIN HYDROCHLORIDE
  11. GLYCOPYRRONIUM [Concomitant]
     Active Substance: GLYCOPYRRONIUM
     Indication: KNEE ARTHROPLASTY

REACTIONS (1)
  - Anaphylactic reaction [Recovered/Resolved]
